FAERS Safety Report 4861806-8 (Version None)
Quarter: 2005Q4

REPORT INFORMATION
  Report Type: 
  Country: None (occurrence: None)
  Receive Date: 20051130
  Receipt Date: 20050406
  Transmission Date: 20060501
  Serious: Yes (Death)
  Sender: FDA-Public Use
  Company Number: 2005055756

PATIENT

DRUGS (1)
  1. LINEZOLID TABLET (LINEZOLID) [Suspect]
     Indication: ILL-DEFINED DISORDER

REACTIONS (2)
  - PANCYTOPENIA [None]
  - THROMBOCYTOPENIA [None]
